FAERS Safety Report 6312803-7 (Version None)
Quarter: 2009Q3

REPORT INFORMATION
  Report Type: 
  Country: None (occurrence: None)
  Receive Date: 20090814
  Receipt Date: 20090804
  Transmission Date: 20100115
  Serious: Yes (Death, Hospitalization)
  Sender: FDA-Public Use
  Company Number: 2009-03140

PATIENT
  Age: 77 Year
  Sex: Male

DRUGS (14)
  1. VELCADE [Suspect]
     Indication: MULTIPLE MYELOMA
     Dates: start: 20070828, end: 20071001
  2. REVLIMID [Suspect]
     Indication: MULTIPLE MYELOMA
     Dosage: 10 MG, UNK, ORAL 5 MG, UNK, ORAL
     Route: 048
     Dates: start: 20070605, end: 20070608
  3. REVLIMID [Suspect]
     Indication: MULTIPLE MYELOMA
     Dosage: 10 MG, UNK, ORAL 5 MG, UNK, ORAL
     Route: 048
     Dates: start: 20070610, end: 20070625
  4. REVLIMID [Suspect]
     Indication: MULTIPLE MYELOMA
     Dosage: 10 MG, UNK, ORAL 5 MG, UNK, ORAL
     Route: 048
     Dates: start: 20070626, end: 20070628
  5. DEXAMETHASONE TAB [Suspect]
     Indication: MULTIPLE MYELOMA
     Dates: start: 20070828, end: 20071001
  6. DEXAMETHASONE TAB [Suspect]
     Indication: MULTIPLE MYELOMA
     Dates: start: 20070605
  7. DOXIL [Suspect]
     Indication: MULTIPLE MYELOMA
     Dates: start: 20070828, end: 20071001
  8. THALIDOMIDE [Suspect]
     Indication: MULTIPLE MYELOMA
  9. WARFARIN SODIUM [Concomitant]
  10. LOVASTATIN [Concomitant]
  11. DIGOXIN [Concomitant]
  12. METOPROLOL SUCCINATE [Concomitant]
  13. OMEPRAZOLE [Concomitant]
  14. ASPIRIN [Concomitant]

REACTIONS (10)
  - ANAEMIA [None]
  - ASTHENIA [None]
  - DISEASE PROGRESSION [None]
  - DYSPNOEA EXERTIONAL [None]
  - HYPOAESTHESIA [None]
  - HYPOPHAGIA [None]
  - HYPOTENSION [None]
  - MULTIPLE MYELOMA [None]
  - NO THERAPEUTIC RESPONSE [None]
  - PLATELET COUNT DECREASED [None]
